FAERS Safety Report 10996705 (Version 1)
Quarter: 2015Q2

REPORT INFORMATION
  Report Type: Spontaneous
  Country: US (occurrence: None)
  Receive Date: 20150407
  Receipt Date: 20150407
  Transmission Date: 20150821
  Serious: No
  Sender: FDA-Public Use
  Company Number: None

PATIENT
  Age: 74 Year
  Sex: Female
  Weight: 70.31 kg

DRUGS (11)
  1. LEVOTHYROXINE [Concomitant]
     Active Substance: LEVOTHYROXINE
  2. CLONIDINE. [Concomitant]
     Active Substance: CLONIDINE
  3. ATENOLOL. [Concomitant]
     Active Substance: ATENOLOL
  4. TRIAMCINOLONE CREAM [Concomitant]
  5. ZOLPIDEM [Concomitant]
     Active Substance: ZOLPIDEM\ZOLPIDEM TARTRATE
  6. 50 PLUS VITAMINS [Concomitant]
  7. FISH OIL [Concomitant]
     Active Substance: FISH OIL
  8. CELECOXIB. [Suspect]
     Active Substance: CELECOXIB
     Indication: ARTHRITIS
     Dosage: 1 PILL A DAY
  9. VITAMIN D [Concomitant]
     Active Substance: CHOLECALCIFEROL
  10. FINACEA GEL [Concomitant]
  11. CALCIUM [Concomitant]
     Active Substance: CALCIUM

REACTIONS (2)
  - Product substitution issue [None]
  - Pain [None]

NARRATIVE: CASE EVENT DATE: 20140406
